FAERS Safety Report 14902159 (Version 2)
Quarter: 2019Q1

REPORT INFORMATION
  Report Type: Report from Study
  Country: IT (occurrence: IT)
  Receive Date: 20180516
  Receipt Date: 20190103
  Transmission Date: 20190417
  Serious: Yes (Other)
  Sender: FDA-Public Use
  Company Number: IT-TEVA-2018-IT-882182

PATIENT
  Age: 80 Year
  Sex: Male
  Weight: 57 kg

DRUGS (2)
  1. GEMSOL [Suspect]
     Active Substance: GEMCITABINE HYDROCHLORIDE
     Indication: BLADDER ADENOCARCINOMA STAGE UNSPECIFIED
     Route: 065
     Dates: start: 20180129, end: 20180129
  2. CARBOPLATIN. [Suspect]
     Active Substance: CARBOPLATIN
     Route: 065
     Dates: start: 20180129, end: 20180129

REACTIONS (1)
  - Infusion site pain [Unknown]

NARRATIVE: CASE EVENT DATE: 20180129
